FAERS Safety Report 4652407-5 (Version None)
Quarter: 2005Q2

REPORT INFORMATION
  Report Type: 
  Country: None (occurrence: None)
  Receive Date: 20050504
  Receipt Date: 20040929
  Transmission Date: 20051028
  Serious: Yes (Life-Threatening, Hospitalization)
  Sender: FDA-Public Use
  Company Number: GB-SANOFI-SYNTHELABO-F01200402969

PATIENT
  Sex: Male

DRUGS (4)
  1. OXALIPLATIN [Suspect]
     Indication: COLORECTAL CANCER METASTATIC
     Route: 042
     Dates: start: 20040826, end: 20040826
  2. CAPECITABINE [Suspect]
     Dosage: 2150 MG TWICE DAILY FROM DAY 1 TO DAY 15, Q3W
     Route: 048
     Dates: start: 20040826, end: 20040909
  3. ATENOLOL [Concomitant]
  4. CLEXANE [Concomitant]
     Dosage: UNK
     Route: 065
     Dates: start: 20041009, end: 20041014

REACTIONS (4)
  - DEEP VEIN THROMBOSIS [None]
  - DIARRHOEA [None]
  - LETHARGY [None]
  - PULMONARY EMBOLISM [None]
